FAERS Safety Report 7169368-X (Version None)
Quarter: 2010Q4

REPORT INFORMATION
  Report Type: 
  Country: None (occurrence: None)
  Receive Date: 20101216
  Receipt Date: 20100108
  Transmission Date: 20110411
  Serious: No
  Sender: FDA-Public Use
  Company Number: US-AMGEN-KDL385085

PATIENT

DRUGS (4)
  1. ENBREL [Suspect]
     Indication: PSORIATIC ARTHROPATHY
     Dosage: 50 MG, QWK
     Route: 058
     Dates: start: 20060321
  2. ENBREL [Suspect]
     Indication: PSORIASIS
  3. METHOTREXATE [Concomitant]
     Dosage: UNK UNK, UNK
  4. EZETIMIBE/SIMVASTATIN [Concomitant]
     Dosage: UNK UNK, UNK
     Dates: end: 20070101

REACTIONS (6)
  - CATARACT [None]
  - DRUG HYPERSENSITIVITY [None]
  - PRURITUS GENERALISED [None]
  - PSORIATIC ARTHROPATHY [None]
  - RASH ERYTHEMATOUS [None]
  - SKIN FISSURES [None]
